FAERS Safety Report 9457594 (Version 3)
Quarter: 2013Q3

REPORT INFORMATION
  Report Type: Spontaneous
  Country: DE (occurrence: DE)
  Receive Date: 20130814
  Receipt Date: 20130930
  Transmission Date: 20140515
  Serious: Yes (Other)
  Sender: FDA-Public Use
  Company Number: DE-JNJFOC-20130804221

PATIENT
  Sex: Male
  Weight: 108 kg

DRUGS (6)
  1. RISPERDAL CONSTA [Suspect]
     Indication: SCHIZOAFFECTIVE DISORDER
     Route: 030
     Dates: start: 201208, end: 201307
  2. RISPERDAL [Suspect]
     Indication: PRODUCT USED FOR UNKNOWN INDICATION
     Route: 048
  3. ACTRAPID [Concomitant]
     Indication: TYPE 1 DIABETES MELLITUS
     Dosage: 18-10-15 (IE)
     Route: 058
  4. LANTUS [Concomitant]
     Indication: TYPE 1 DIABETES MELLITUS
     Dosage: 0-0-15 (IE)
     Route: 058
  5. BISOPROLOL [Concomitant]
     Indication: ESSENTIAL HYPERTENSION
     Route: 048
     Dates: start: 2011
  6. ERGENYL CHRONO [Concomitant]
     Indication: SCHIZOAFFECTIVE DISORDER
     Route: 048
     Dates: start: 2009

REACTIONS (1)
  - Deep vein thrombosis [Recovering/Resolving]
